FAERS Safety Report 26061426 (Version 1)
Quarter: 2025Q4

REPORT INFORMATION
  Report Type: Spontaneous
  Country: US (occurrence: US)
  Receive Date: 20251118
  Receipt Date: 20251118
  Transmission Date: 20260117
  Serious: No
  Sender: Alpha Cognition
  Company Number: US-ALPHA COGNITION-2025-ZUN-00029

PATIENT

DRUGS (1)
  1. ZUNVEYL [Suspect]
     Active Substance: GALANTAMINE BENZOATE
     Indication: Product used for unknown indication
     Dosage: 5 MG
     Route: 065
     Dates: start: 202509, end: 20250915

REACTIONS (2)
  - Gait disturbance [Unknown]
  - Eating disorder [Unknown]

NARRATIVE: CASE EVENT DATE: 20250901
